FAERS Safety Report 4261872-7 (Version None)
Quarter: 2004Q1

REPORT INFORMATION
  Report Type: 
  Country: None (occurrence: None)
  Receive Date: 20040102
  Receipt Date: 20031127
  Transmission Date: 20041129
  Serious: Yes (Hospitalization, Disabling)
  Sender: FDA-Public Use
  Company Number: PHBS2003JP13380

PATIENT
  Age: 72 Year
  Sex: Male
  Weight: 63 kg

DRUGS (6)
  1. DIOVAN [Suspect]
     Indication: HYPERTENSION
     Dosage: 40 MG/DAY
     Route: 048
     Dates: start: 20031006, end: 20031010
  2. DIOVAN [Suspect]
     Dosage: 40 MG/DAY
     Route: 048
     Dates: start: 20031117, end: 20031122
  3. BUFFERIN [Concomitant]
     Indication: AGE INDETERMINATE MYOCARDIAL INFARCTION
     Dosage: 81 MG/DAY
     Route: 048
     Dates: start: 20010208
  4. MEVALOTIN [Concomitant]
     Indication: HYPERCHOLESTEROLAEMIA
     Dosage: 5 MG/DAY
     Route: 048
     Dates: start: 20010208
  5. NORVASC [Concomitant]
     Indication: HYPERTENSION
     Dosage: 5 MG/DAY
     Route: 048
     Dates: start: 20010208
  6. MARZULENE [Concomitant]
     Indication: GASTRITIS
     Dosage: 1 G/DAY
     Route: 048
     Dates: start: 20010208

REACTIONS (6)
  - ATRIOVENTRICULAR BLOCK [None]
  - ATRIOVENTRICULAR BLOCK COMPLETE [None]
  - BLOOD PRESSURE SYSTOLIC INCREASED [None]
  - BRADYCARDIA [None]
  - MALAISE [None]
  - TREATMENT NONCOMPLIANCE [None]
